FAERS Safety Report 25354425 (Version 2)
Quarter: 2025Q2

REPORT INFORMATION
  Report Type: Spontaneous
  Country: TW (occurrence: TW)
  Receive Date: 20250523
  Receipt Date: 20250527
  Transmission Date: 20250717
  Serious: Yes (Other)
  Sender: MERCK SHARP & DOHME LLC
  Company Number: TW-009507513-2285860

PATIENT
  Age: 39 Year
  Sex: Female
  Weight: 68 kg

DRUGS (11)
  1. KEYTRUDA [Suspect]
     Active Substance: PEMBROLIZUMAB
     Indication: Endometrial cancer metastatic
     Dosage: Q3W FOR 6 CYCLES
     Dates: start: 20250208
  2. KEYTRUDA [Suspect]
     Active Substance: PEMBROLIZUMAB
     Indication: Endometrial cancer metastatic
     Dosage: Q3W FOR 6 CYCLES
     Dates: start: 20250303
  3. KEYTRUDA [Suspect]
     Active Substance: PEMBROLIZUMAB
     Indication: Endometrial cancer metastatic
     Dosage: Q3W FOR 6 CYCLES
     Dates: start: 20250324
  4. KEYTRUDA [Suspect]
     Active Substance: PEMBROLIZUMAB
     Indication: Endometrial cancer metastatic
     Dosage: Q3W FOR 6 CYCLES
     Dates: start: 20250422
  5. TAXOL [Suspect]
     Active Substance: PACLITAXEL
     Indication: Endometrial cancer metastatic
     Dosage: 135MG/M2, Q3W FOR 6 CYCLES
     Dates: start: 20250208
  6. TAXOL [Suspect]
     Active Substance: PACLITAXEL
     Indication: Endometrial cancer metastatic
     Dosage: 135MG/M2, Q3W FOR 6 CYCLES
     Dates: start: 20250303
  7. CISPLATIN [Suspect]
     Active Substance: CISPLATIN
     Indication: Endometrial cancer metastatic
     Dosage: 40MG/M2, Q3W FOR 6 CYCLES
     Dates: start: 20250303
  8. CISPLATIN [Suspect]
     Active Substance: CISPLATIN
     Indication: Endometrial cancer metastatic
     Dosage: 40MG/M2, Q3W FOR 6 CYCLES
     Dates: start: 20250208
  9. DOXORUBICIN HYDROCHLORIDE [Suspect]
     Active Substance: DOXORUBICIN HYDROCHLORIDE
     Indication: Endometrial cancer metastatic
     Dates: start: 20250324
  10. CARBOPLATIN [Suspect]
     Active Substance: CARBOPLATIN
     Indication: Endometrial cancer metastatic
     Dates: start: 20250324
  11. CARBOPLATIN [Suspect]
     Active Substance: CARBOPLATIN
     Indication: Endometrial cancer metastatic
     Dates: start: 20250422

REACTIONS (5)
  - Anaphylactic shock [Unknown]
  - Product use issue [Unknown]
  - Product use issue [Unknown]
  - Product use issue [Unknown]
  - Inappropriate schedule of product administration [Unknown]

NARRATIVE: CASE EVENT DATE: 20250208
